FAERS Safety Report 4649506-0 (Version None)
Quarter: 2005Q2

REPORT INFORMATION
  Report Type: 
  Country: None (occurrence: None)
  Receive Date: 20050427
  Receipt Date: 20050414
  Transmission Date: 20051028
  Serious: Yes (Other)
  Sender: FDA-Public Use
  Company Number: 2005059872

PATIENT
  Age: 70 Year
  Sex: Male
  Weight: 83.4619 kg

DRUGS (6)
  1. BEXTRA [Suspect]
     Indication: ARTHRITIS
     Dosage: 10 MG (10 MG, 1 IN1 D)
  2. NABUMETONE [Concomitant]
  3. ACETAMINOPHEN [Concomitant]
  4. TERAZOSIN (TERAZOSIN) [Concomitant]
  5. LISINOPRIL [Concomitant]
  6. VINCENTS TABLETS (ACETYLSALICYLIC ACID, CAFFEINE, SALICYLAMIDE) [Concomitant]

REACTIONS (3)
  - HEART RATE INCREASED [None]
  - RASH PRURITIC [None]
  - SURGERY [None]
